FAERS Safety Report 6977855-X (Version None)
Quarter: 2010Q3

REPORT INFORMATION
  Report Type: 
  Country: None (occurrence: None)
  Receive Date: 20100913
  Receipt Date: 20100907
  Transmission Date: 20110219
  Serious: No
  Sender: FDA-Public Use
  Company Number: 2009BI018522

PATIENT
  Age: 59 Year
  Sex: Female

DRUGS (1)
  1. TYSABRI [Suspect]
     Indication: MULTIPLE SCLEROSIS
     Route: 042
     Dates: start: 20090225

REACTIONS (10)
  - ANAEMIA [None]
  - DIARRHOEA [None]
  - GASTROENTERITIS NOROVIRUS [None]
  - GASTROENTERITIS VIRAL [None]
  - HAEMOGLOBIN DECREASED [None]
  - LYMPHADENOPATHY [None]
  - MOBILITY DECREASED [None]
  - NASOPHARYNGITIS [None]
  - PARAESTHESIA [None]
  - SINUSITIS [None]
